FAERS Safety Report 18059055 (Version 1)
Quarter: 2020Q3

REPORT INFORMATION
  Report Type: Spontaneous
  Country: US (occurrence: US)
  Receive Date: 20200723
  Receipt Date: 20200723
  Transmission Date: 20201103
  Serious: No
  Sender: FDA-Public Use
  Company Number: US-SA-2020SA190596

PATIENT

DRUGS (16)
  1. CLOPIDOGREL [Concomitant]
     Active Substance: CLOPIDOGREL BISULFATE
  2. MYRBETRIQ [Concomitant]
     Active Substance: MIRABEGRON
  3. CYMBALTA [Concomitant]
     Active Substance: DULOXETINE HYDROCHLORIDE
  4. ESTRADIOL. [Concomitant]
     Active Substance: ESTRADIOL
  5. IMITREX [Concomitant]
     Active Substance: SUMATRIPTAN SUCCINATE
  6. PREDNISONE. [Concomitant]
     Active Substance: PREDNISONE
  7. TROKENDI XR [Concomitant]
     Active Substance: TOPIRAMATE
  8. AVONEX [Concomitant]
     Active Substance: INTERFERON BETA-1A
  9. HYDROCODONE/ACETAMINOPHEN [Concomitant]
     Active Substance: ACETAMINOPHEN\HYDROCODONE
  10. LAMISIL [TERBINAFINE] [Concomitant]
  11. TOPIRAMATE. [Concomitant]
     Active Substance: TOPIRAMATE
  12. AUBAGIO [Suspect]
     Active Substance: TERIFLUNOMIDE
     Indication: PRODUCT USED FOR UNKNOWN INDICATION
     Dosage: 1 DF, QD
     Route: 048
  13. ASPIRIN [ACETYLSALICYLIC ACID] [Concomitant]
     Active Substance: ASPIRIN
  14. BACTRIM DS [Concomitant]
     Active Substance: SULFAMETHOXAZOLE\TRIMETHOPRIM
  15. LASIX [Concomitant]
     Active Substance: FUROSEMIDE
  16. AMOXCLAV [AMOXICILLIN TRIHYDRATE;CLAVULANATE POTASSIUM] [Concomitant]

REACTIONS (1)
  - Product dose omission issue [Unknown]
